FAERS Safety Report 17872265 (Version 3)
Quarter: 2021Q3

REPORT INFORMATION
  Report Type: Spontaneous
  Country: US (occurrence: US)
  Receive Date: 20200608
  Receipt Date: 20210820
  Transmission Date: 20211014
  Serious: Yes (Other)
  Sender: FDA-Public Use
  Company Number: US-PFIZER INC-2019316074

PATIENT
  Age: 52 Year
  Sex: Female
  Weight: 55.34 kg

DRUGS (7)
  1. PREMARIN [Suspect]
     Active Substance: ESTROGENS, CONJUGATED
     Dosage: 0.5 MG, EVERY OTHER DAY
     Route: 067
     Dates: start: 20200108, end: 20200124
  2. PREMARIN [Suspect]
     Active Substance: ESTROGENS, CONJUGATED
     Indication: HYSTERECTOMY
     Dosage: 0.5 G, 2X/WEEKLY
     Route: 067
  3. PREMARIN [Suspect]
     Active Substance: ESTROGENS, CONJUGATED
     Indication: RECTOCELE
     Dosage: ONE APPLICATOR FULL THREE TIMES A WEEK
     Route: 067
     Dates: start: 2005
  4. PREMARIN [Suspect]
     Active Substance: ESTROGENS, CONJUGATED
     Dosage: 0.625 MG, UNK
  5. PREMARIN [Suspect]
     Active Substance: ESTROGENS, CONJUGATED
     Dosage: UNK, 3X/WEEK
  6. PREMARIN [Suspect]
     Active Substance: ESTROGENS, CONJUGATED
     Indication: VAGINAL PESSARY INSERTION
     Dosage: UNK, 3 TIMES A WEEK
     Route: 067
  7. PREMARIN [Suspect]
     Active Substance: ESTROGENS, CONJUGATED
     Dosage: 0.5 MG, THREE TIMES WEEKLY
     Route: 067
     Dates: start: 2007, end: 20200226

REACTIONS (13)
  - Ulcer [Unknown]
  - Migraine [Unknown]
  - Abdominal pain upper [Unknown]
  - Product storage error [Unknown]
  - Gastric disorder [Unknown]
  - Illness [Unknown]
  - Eating disorder [Unknown]
  - Haemorrhoids [Unknown]
  - Scar [Unknown]
  - Gastrooesophageal reflux disease [Unknown]
  - Off label use [Unknown]
  - Dehydration [Unknown]
  - Diarrhoea [Unknown]

NARRATIVE: CASE EVENT DATE: 2005
